FAERS Safety Report 4630661-3 (Version None)
Quarter: 2005Q2

REPORT INFORMATION
  Report Type: 
  Country: None (occurrence: None)
  Receive Date: 20050406
  Receipt Date: 20050322
  Transmission Date: 20051028
  Serious: Yes (Hospitalization)
  Sender: FDA-Public Use
  Company Number: US_0503114545

PATIENT
  Age: 0 Month
  Sex: Female
  Weight: 2 kg

DRUGS (4)
  1. HUMULIN R [Suspect]
     Dates: start: 20041001, end: 20041001
  2. HUMULIN-HUMAN NPH INSULIN (RDNA) (HUMAN INSUTIN (RD [Suspect]
     Dates: start: 20041001, end: 20041001
  3. NOVOLIN NPH (INSULIN HUMAN INJECTION, ISOPHANE) [Concomitant]
  4. BENADRYL [Concomitant]

REACTIONS (3)
  - DRUG EXPOSURE DURING PREGNANCY [None]
  - PREMATURE BABY [None]
  - WEIGHT DECREASE NEONATAL [None]
